FAERS Safety Report 4774405-3 (Version None)
Quarter: 2005Q3

REPORT INFORMATION
  Report Type: 
  Country: None (occurrence: None)
  Receive Date: 20050919
  Receipt Date: 20050919
  Transmission Date: 20060218
  Serious: Yes (Other)
  Sender: FDA-Public Use
  Company Number: None

PATIENT
  Age: 56 Year
  Sex: Male
  Weight: 119.296 kg

DRUGS (1)
  1. STRIANT [Suspect]
     Indication: BLOOD TESTOSTERONE DECREASED
     Dates: start: 20050713, end: 20050913

REACTIONS (1)
  - PHARMACEUTICAL PRODUCT COMPLAINT [None]
